FAERS Safety Report 9478288 (Version 1)
Quarter: 2013Q3

REPORT INFORMATION
  Report Type: Spontaneous
  Country: US (occurrence: US)
  Receive Date: 20130827
  Receipt Date: 20130827
  Transmission Date: 20140515
  Serious: No
  Sender: FDA-Public Use
  Company Number: US-009507513-1308USA008798

PATIENT
  Sex: Male

DRUGS (1)
  1. EMEND [Suspect]
     Indication: PROPHYLAXIS OF NAUSEA AND VOMITING
     Dosage: 150 MG/DOSING REGIMEN SHEDULE UNSPECIFIED
     Route: 041
     Dates: start: 201306, end: 201306

REACTIONS (1)
  - Back pain [Recovering/Resolving]
